FAERS Safety Report 6885673-6 (Version None)
Quarter: 2010Q3

REPORT INFORMATION
  Report Type: 
  Country: None (occurrence: None)
  Receive Date: 20100729
  Receipt Date: 20080917
  Transmission Date: 20110219
  Serious: Yes (Hospitalization)
  Sender: FDA-Public Use
  Company Number: US-PFIZER INC-2008078935

PATIENT
  Sex: Female
  Weight: 52.727 kg

DRUGS (2)
  1. CELEBREX [Suspect]
     Indication: BACK PAIN
     Route: 048
     Dates: start: 20060101, end: 20080830
  2. CELEBREX [Suspect]
     Indication: INTERVERTEBRAL DISC PROTRUSION

REACTIONS (7)
  - ABDOMINAL PAIN [None]
  - DIZZINESS [None]
  - FEELING ABNORMAL [None]
  - FEELING JITTERY [None]
  - MALAISE [None]
  - THERAPY REGIMEN CHANGED [None]
  - THINKING ABNORMAL [None]
